FAERS Safety Report 15751938 (Version 1)
Quarter: 2018Q4

REPORT INFORMATION
  Report Type: Report from Study
  Country: FR (occurrence: FR)
  Receive Date: 20181221
  Receipt Date: 20181221
  Transmission Date: 20190205
  Serious: Yes (Death, Hospitalization, Disabling, Other)
  Sender: FDA-Public Use
  Company Number: FR-VELOXIS PHARMACEUTICALS, INC.-2018VELFR1311

PATIENT

DRUGS (4)
  1. CICLOSPORIN [Suspect]
     Active Substance: CYCLOSPORINE
     Indication: PRODUCT USED FOR UNKNOWN INDICATION
     Dosage: UNK, UNKNOWN FREQ.
     Route: 065
  2. BRENTUXIMAB VEDOTIN [Suspect]
     Active Substance: BRENTUXIMAB VEDOTIN
     Indication: PERIPHERAL T-CELL LYMPHOMA UNSPECIFIED
     Dosage: 135 MG, UNK
     Route: 042
     Dates: start: 20160729, end: 20161110
  3. BENDAMUSTINE HYDROCHLORIDE. [Suspect]
     Active Substance: BENDAMUSTINE HYDROCHLORIDE
     Indication: PERIPHERAL T-CELL LYMPHOMA UNSPECIFIED
     Dosage: 170 MG, UNK
     Route: 042
     Dates: start: 20160729, end: 20160819
  4. ENVARSUS XR [Suspect]
     Active Substance: TACROLIMUS
     Indication: PRODUCT USED FOR UNKNOWN INDICATION
     Dosage: UNK, UNKNOWN FREQ.
     Route: 065

REACTIONS (20)
  - Graft versus host disease [Fatal]
  - Thrombosis [Fatal]
  - Malaise [Recovered/Resolved]
  - Chills [Recovered/Resolved]
  - Infection [Recovered/Resolved]
  - Vomiting [Recovered/Resolved]
  - Death [Fatal]
  - Asthenia [Fatal]
  - Sarcopenia [Fatal]
  - Physical disability [Fatal]
  - Fatigue [Recovered/Resolved]
  - Neurotoxicity [Fatal]
  - Pyrexia [Recovered/Resolved]
  - Tachycardia [Recovered/Resolved]
  - Cytomegalovirus infection [Fatal]
  - Rash [Recovered/Resolved]
  - Nausea [Recovered/Resolved]
  - Hypotension [Recovered/Resolved]
  - General physical health deterioration [Fatal]
  - Anaphylactic reaction [Recovered/Resolved]

NARRATIVE: CASE EVENT DATE: 201607
